FAERS Safety Report 9349163 (Version 2)
Quarter: 2013Q3

REPORT INFORMATION
  Report Type: Report from Study
  Country: JP (occurrence: JP)
  Receive Date: 20130614
  Receipt Date: 20130822
  Transmission Date: 20140515
  Serious: Yes (Death)
  Sender: FDA-Public Use
  Company Number: JP-UCBSA-088389

PATIENT
  Sex: Male
  Weight: 81 kg

DRUGS (14)
  1. E KEPPRA [Suspect]
     Indication: SIMPLE PARTIAL SEIZURES
     Route: 048
     Dates: start: 20111213, end: 20120605
  2. E KEPPRA [Suspect]
     Indication: SIMPLE PARTIAL SEIZURES
     Route: 048
     Dates: start: 20120606, end: 20120614
  3. E KEPPRA [Suspect]
     Indication: SIMPLE PARTIAL SEIZURES
     Route: 048
     Dates: start: 20120615, end: 20121010
  4. E KEPPRA [Suspect]
     Indication: SIMPLE PARTIAL SEIZURES
     Route: 048
     Dates: start: 20121011, end: 20130104
  5. TEGRETOL [Concomitant]
     Indication: SIMPLE PARTIAL SEIZURES
     Dosage: 200MG DAILY
     Route: 048
     Dates: start: 20110104, end: 20110105
  6. TEGRETOL [Concomitant]
     Indication: SIMPLE PARTIAL SEIZURES
     Dosage: 200MG DAILY
     Route: 048
     Dates: start: 20110104, end: 20110105
  7. TEGRETOL [Concomitant]
     Indication: SIMPLE PARTIAL SEIZURES
     Dosage: 400 MG DAILY
     Route: 048
     Dates: start: 20110106, end: 20110731
  8. TEGRETOL [Concomitant]
     Indication: SIMPLE PARTIAL SEIZURES
     Dosage: 400 MG DAILY
     Route: 048
     Dates: start: 20110106, end: 20110731
  9. TEGRETOL [Concomitant]
     Indication: SIMPLE PARTIAL SEIZURES
     Dosage: 600MG DAILY
     Route: 048
     Dates: start: 20110801
  10. TEGRETOL [Concomitant]
     Indication: SIMPLE PARTIAL SEIZURES
     Dosage: 600MG DAILY
     Route: 048
     Dates: start: 20110801
  11. TEMODAL [Concomitant]
     Indication: EPENDYMOMA MALIGNANT
     Dosage: 240 MG DAILY
     Route: 048
     Dates: start: 20111215, end: 20111219
  12. RINDERON [Concomitant]
     Indication: EPENDYMOMA MALIGNANT
     Dosage: 5MG DAILY
     Route: 048
     Dates: start: 20120120, end: 20130104
  13. MAGMITT [Concomitant]
     Indication: CONSTIPATION
     Dosage: 1980 MG DAILY
     Route: 048
     Dates: start: 20120607, end: 20120724
  14. GASTER D [Concomitant]
     Indication: GASTRITIS
     Dosage: 20MG DAILY
     Route: 048
     Dates: start: 20120120, end: 20130104

REACTIONS (1)
  - Ependymoma malignant [Fatal]
